FAERS Safety Report 20790556 (Version 1)
Quarter: 2022Q2

REPORT INFORMATION
  Report Type: Spontaneous
  Country: PT (occurrence: PT)
  Receive Date: 20220505
  Receipt Date: 20220505
  Transmission Date: 20220721
  Serious: Yes (Hospitalization, Other)
  Sender: FDA-Public Use
  Company Number: PT-DSJP-DSE-2022-114873

PATIENT
  Age: 66 Year
  Sex: Female

DRUGS (3)
  1. EDOXABAN [Suspect]
     Active Substance: EDOXABAN
     Indication: Mitral valve incompetence
     Dosage: UNK
  2. EDOXABAN [Suspect]
     Active Substance: EDOXABAN
     Indication: Cardiac valve disease
  3. EDOXABAN [Suspect]
     Active Substance: EDOXABAN
     Indication: Atrial fibrillation

REACTIONS (11)
  - Anaemia [Recovered/Resolved]
  - Occult blood [Recovered/Resolved]
  - Gastric haemorrhage [Recovered/Resolved]
  - Hypochromic anaemia [Recovered/Resolved]
  - Cardiac failure [Unknown]
  - Duodenal ulcer [Recovered/Resolved]
  - Gastric polyps [Recovered/Resolved]
  - Duodenal polyp [Recovered/Resolved]
  - Gastric ulcer [Recovered/Resolved]
  - Glycogenic acanthosis [Unknown]
  - Gastric operation [Recovered/Resolved]
